FAERS Safety Report 7722477-6 (Version None)
Quarter: 2011Q3

REPORT INFORMATION
  Report Type: 
  Country: None (occurrence: None)
  Receive Date: 20110831
  Receipt Date: 20110816
  Transmission Date: 20111222
  Serious: Yes (Life-Threatening, Hospitalization)
  Sender: FDA-Public Use
  Company Number: FR-BAYER-2011-073619

PATIENT
  Age: 42 Year
  Sex: Female

DRUGS (7)
  1. ACETAMINOPHEN [Suspect]
     Dosage: 16 DF, ONCE
     Route: 048
     Dates: start: 20100827, end: 20100827
  2. ANAFRANIL [Concomitant]
  3. IBUPROFEN [Suspect]
     Dosage: 20 DF, ONCE
     Route: 048
     Dates: start: 20100827, end: 20100827
  4. MOTILIUM [Concomitant]
  5. ASPRO [Suspect]
     Dosage: 50 DF, ONCE
     Route: 048
     Dates: start: 20100827, end: 20100827
  6. OXAZEPAM [Concomitant]
  7. CITALOPRAM HYDROBROMIDE [Concomitant]

REACTIONS (5)
  - INTRA-UTERINE DEATH [None]
  - HYPOACUSIS [None]
  - TACHYCARDIA [None]
  - INTENTIONAL OVERDOSE [None]
  - ACIDOSIS [None]
